FAERS Safety Report 4364428-0 (Version None)
Quarter: 2004Q2

REPORT INFORMATION
  Report Type: 
  Country: None (occurrence: None)
  Receive Date: 20040525
  Receipt Date: 20040513
  Transmission Date: 20050107
  Serious: Yes (Hospitalization)
  Sender: FDA-Public Use
  Company Number: BE-ROCHE-367466

PATIENT
  Age: 53 Year
  Sex: Female
  Weight: 64 kg

DRUGS (3)
  1. PEG-INTERFERON ALFA 2A (RO 25-8310) [Suspect]
     Dosage: FORMULATION: INJECTION.
     Route: 058
  2. RIBAVIRIN [Suspect]
     Route: 048
  3. AMANTADINE HCL [Suspect]
     Route: 048

REACTIONS (1)
  - DELIRIUM [None]
